FAERS Safety Report 7814684-9 (Version None)
Quarter: 2011Q4

REPORT INFORMATION
  Report Type: 
  Country: None (occurrence: None)
  Receive Date: 20111014
  Receipt Date: 20111011
  Transmission Date: 20120403
  Serious: Yes (Other)
  Sender: FDA-Public Use
  Company Number: TW-PFIZER INC-2011241750

PATIENT
  Sex: Male

DRUGS (4)
  1. DOXEPIN HCL [Suspect]
     Indication: DEPRESSION
  2. DOXEPIN HCL [Suspect]
     Indication: INSOMNIA
  3. DOXEPIN HCL [Suspect]
     Indication: ANXIETY
  4. DOXEPIN HCL [Suspect]
     Indication: AFFECTIVE DISORDER
     Dosage: 10 MG TID AS NEEDED
     Route: 048

REACTIONS (3)
  - DRY MOUTH [None]
  - URINARY INCONTINENCE [None]
  - COUGH [None]
